FAERS Safety Report 9531341 (Version 4)
Quarter: 2014Q1

REPORT INFORMATION
  Report Type: Report from Study
  Country: CN (occurrence: CN)
  Receive Date: 20130918
  Receipt Date: 20140227
  Transmission Date: 20141002
  Serious: Yes (Other)
  Sender: FDA-Public Use
  Company Number: CN-ASTELLAS-2013US009782

PATIENT
  Age: 51 Year
  Sex: Female

DRUGS (4)
  1. ERLOTINIB TABLET [Suspect]
     Indication: NON-SMALL CELL LUNG CANCER
     Dosage: 150 MG, UNKNOWN/D
     Route: 048
     Dates: start: 20130114, end: 20130701
  2. ERLOTINIB TABLET [Suspect]
     Dosage: 75 MG, UID/QD
     Route: 048
     Dates: start: 201302
  3. ERLOTINIB TABLET [Suspect]
     Dosage: 75 MG, UID/QD
     Route: 048
     Dates: start: 20130701, end: 20130712
  4. ERLOTINIB TABLET [Suspect]
     Dosage: 150 MG, UID/QD
     Route: 048
     Dates: start: 20130712

REACTIONS (6)
  - Suspected counterfeit product [Unknown]
  - Ligament sprain [Unknown]
  - Lymphangiopathy [Unknown]
  - Pleuritic pain [Unknown]
  - Metastases to lymph nodes [Unknown]
  - Chest pain [Recovering/Resolving]
